FAERS Safety Report 24908417 (Version 2)
Quarter: 2025Q1

REPORT INFORMATION
  Report Type: Spontaneous
  Country: US (occurrence: US)
  Receive Date: 20250131
  Receipt Date: 20250328
  Transmission Date: 20250409
  Serious: Yes (Other)
  Sender: ELI LILLY AND COMPANY
  Company Number: US-ELI_LILLY_AND_COMPANY-US202501020740

PATIENT
  Age: 82 Year
  Sex: Female

DRUGS (5)
  1. VERZENIO [Suspect]
     Active Substance: ABEMACICLIB
     Indication: Breast cancer metastatic
     Dosage: 100 MG, BID 2X50 MG TABLETS)
     Route: 048
     Dates: start: 202408
  2. VERZENIO [Suspect]
     Active Substance: ABEMACICLIB
     Dosage: 150 MG, UNKNOWN (3X50 MG TABLETS)
     Route: 048
     Dates: start: 20241206, end: 202501
  3. VERZENIO [Suspect]
     Active Substance: ABEMACICLIB
     Route: 048
  4. ANASTROZOLE [Concomitant]
     Active Substance: ANASTROZOLE
     Indication: Breast cancer metastatic
     Dosage: 1 MG, DAILY
     Route: 048
  5. WARFARIN [Concomitant]
     Active Substance: WARFARIN
     Indication: Prophylaxis
     Dosage: 2.5 MG, DAILY
     Route: 048

REACTIONS (6)
  - Malignant neoplasm progression [Unknown]
  - Dehydration [Unknown]
  - Stress [Unknown]
  - Anxiety [Unknown]
  - Nasopharyngitis [Recovering/Resolving]
  - Diarrhoea [Unknown]
